FAERS Safety Report 4971443-2 (Version None)
Quarter: 2006Q2

REPORT INFORMATION
  Report Type: 
  Country: None (occurrence: None)
  Receive Date: 20060413
  Receipt Date: 20060306
  Transmission Date: 20061013
  Serious: Yes (Life-Threatening, Hospitalization)
  Sender: FDA-Public Use
  Company Number: TH-BRISTOL-MYERS SQUIBB COMPANY-13316310

PATIENT
  Age: 53 Year
  Sex: Female

DRUGS (9)
  1. HOLOXAN [Suspect]
     Indication: CHEMOTHERAPY
     Route: 042
     Dates: start: 20060222, end: 20060223
  2. CISPLATIN [Suspect]
     Indication: CHEMOTHERAPY
     Route: 042
     Dates: start: 20060222, end: 20060222
  3. KYTRIL [Concomitant]
     Indication: PREMEDICATION
     Route: 042
  4. DEXAMETHASONE [Concomitant]
     Indication: PREMEDICATION
     Route: 042
  5. ATIVAN [Concomitant]
     Indication: PREMEDICATION
     Route: 048
  6. MESNA [Concomitant]
  7. ONDANSETRON [Concomitant]
  8. HYDROCHLOROTHIAZIDE [Concomitant]
  9. MEGACE [Concomitant]

REACTIONS (6)
  - BLOOD CREATININE ABNORMAL [None]
  - HYPOKALAEMIA [None]
  - LEUKOPENIA [None]
  - NEUTROPENIA [None]
  - RENAL FAILURE ACUTE [None]
  - THROMBOCYTOPENIA [None]
